FAERS Safety Report 6038238-2 (Version None)
Quarter: 2009Q1

REPORT INFORMATION
  Report Type: 
  Country: None (occurrence: None)
  Receive Date: 20090114
  Receipt Date: 20090114
  Transmission Date: 20090719
  Serious: Yes (Hospitalization)
  Sender: FDA-Public Use
  Company Number: None

PATIENT
  Sex: Female
  Weight: 54 kg

DRUGS (4)
  1. CISPLATIN [Suspect]
     Dosage: 83 MG
  2. DOXORUBICIN HYDROCHLORIDE [Suspect]
     Dosage: 74 MG
  3. TAXOL [Suspect]
     Dosage: 264 MG
  4. NEULASTA [Suspect]
     Dosage: 6 MG

REACTIONS (5)
  - APPENDICECTOMY [None]
  - DIARRHOEA [None]
  - ILEUS [None]
  - INTESTINAL PERFORATION [None]
  - PERITONITIS [None]
